FAERS Safety Report 15034707 (Version 1)
Quarter: 2018Q2

REPORT INFORMATION
  Report Type: Spontaneous
  Country: JP (occurrence: JP)
  Receive Date: 20180620
  Receipt Date: 20180620
  Transmission Date: 20180711
  Serious: Yes (Hospitalization, Other)
  Sender: FDA-Public Use
  Company Number: JP-UCBSA-2018025106

PATIENT
  Age: 72 Year
  Sex: Male

DRUGS (2)
  1. NEUPRO [Suspect]
     Active Substance: ROTIGOTINE
     Dosage: 4 MG, ONCE DAILY (QD)
     Route: 062
     Dates: start: 20171124, end: 20180507
  2. NEUPRO [Suspect]
     Active Substance: ROTIGOTINE
     Indication: PARKINSON^S DISEASE
     Dosage: STRENGTH: 1 MG; 2 MG, FREQUENCY UNKNOWN
     Route: 062
     Dates: start: 20171027, end: 20171123

REACTIONS (3)
  - Aggression [Recovering/Resolving]
  - Fall [Unknown]
  - Libido increased [Recovered/Resolved]

NARRATIVE: CASE EVENT DATE: 20171208
